FAERS Safety Report 11167124 (Version 1)
Quarter: 2015Q2

REPORT INFORMATION
  Report Type: Spontaneous
  Country: FR (occurrence: None)
  Receive Date: 20150603
  Receipt Date: 20150603
  Transmission Date: 20150821
  Serious: Yes (Life-Threatening, Hospitalization)
  Sender: FDA-Public Use
  Company Number: 2015DEPFR00654

PATIENT
  Age: 54 Year
  Sex: Female

DRUGS (9)
  1. DEPOCYT [Suspect]
     Active Substance: CYTARABINE
     Indication: METASTASES TO MENINGES
     Dosage: EVERY 14 DAYS
     Route: 037
     Dates: start: 20140905, end: 20141105
  2. LYRICA [Concomitant]
     Active Substance: PREGABALIN
  3. OXYCONTIN [Concomitant]
     Active Substance: OXYCODONE HYDROCHLORIDE
  4. TAXOTERE [Concomitant]
     Active Substance: DOCETAXEL
  5. ANASTROZOLE (ANASTROZOLE) [Concomitant]
     Active Substance: ANASTROZOLE
  6. NEURONTIN [Concomitant]
     Active Substance: GABAPENTIN
  7. XELODA [Suspect]
     Active Substance: CAPECITABINE
     Indication: INVASIVE LOBULAR BREAST CARCINOMA
     Dosage: DAILY FOR 14 DAYS
     Route: 048
     Dates: start: 20140905, end: 20150126
  8. IMOVANE [Concomitant]
     Active Substance: ZOPICLONE
  9. TEGRETOL [Concomitant]
     Active Substance: CARBAMAZEPINE

REACTIONS (1)
  - Acute myocardial infarction [None]

NARRATIVE: CASE EVENT DATE: 20150126
